FAERS Safety Report 16314172 (Version 6)
Quarter: 2020Q3

REPORT INFORMATION
  Report Type: Report from Study
  Country: KR (occurrence: KR)
  Receive Date: 20190515
  Receipt Date: 20200907
  Transmission Date: 20201102
  Serious: Yes (Hospitalization)
  Sender: FDA-Public Use
  Company Number: KR-ROCHE-2305386

PATIENT
  Age: 62 Year
  Sex: Female
  Weight: 58 kg

DRUGS (26)
  1. TARGIN [Concomitant]
     Active Substance: NALOXONE HYDROCHLORIDE\OXYCODONE HYDROCHLORIDE
     Dates: start: 20181213
  2. FENTANYL CITRATE. [Concomitant]
     Active Substance: FENTANYL CITRATE
     Dates: start: 20190417, end: 20190417
  3. ERIBULIN MESYLATE [Suspect]
     Active Substance: ERIBULIN MESYLATE
     Indication: TRIPLE NEGATIVE BREAST CANCER
     Dosage: DOSE OF LAST STUDY DRUG ERIBULIN MESYLATE ADMINISTERED PRIOR TO AE ONSET 2.2?DATE OF MOST RECENT DOS
     Route: 042
     Dates: start: 20190207
  4. LACTICARE HC [Concomitant]
     Dates: start: 20190321
  5. ATEZOLIZUMAB. [Suspect]
     Active Substance: ATEZOLIZUMAB
     Indication: TRIPLE NEGATIVE BREAST CANCER
     Dosage: DOSE OF LAST STUDY DRUG ATEZOLIZUMAB ADMINISTERED PRIOR TO AE ONSET 1200?DATE OF MOST RECENT DOSE OF
     Route: 041
     Dates: start: 20190207
  6. GASTER [Concomitant]
     Active Substance: FAMOTIDINE
     Dates: start: 20190423, end: 20190604
  7. CHLORPHENIRAMINE MALEATE. [Concomitant]
     Active Substance: CHLORPHENIRAMINE MALEATE
     Indication: URTICARIA
     Dates: start: 20190421, end: 20190424
  8. PANTOLINE [Concomitant]
     Active Substance: PANTOPRAZOLE SODIUM
     Dates: start: 20190417, end: 20190421
  9. CICIBON [Concomitant]
     Dates: start: 20190417, end: 20190418
  10. CAPECITABINE. [Suspect]
     Active Substance: CAPECITABINE
     Indication: TRIPLE NEGATIVE BREAST CANCER
     Dosage: ON DAYS 1?14 OF EACH 21 DAY CYCLE
     Route: 048
     Dates: start: 20180823
  11. MAGNESIUM OXIDE. [Concomitant]
     Active Substance: MAGNESIUM OXIDE
     Dates: start: 20180823
  12. TARGIN [Concomitant]
     Active Substance: NALOXONE HYDROCHLORIDE\OXYCODONE HYDROCHLORIDE
     Route: 065
     Dates: start: 20181122
  13. TARGIN [Concomitant]
     Active Substance: NALOXONE HYDROCHLORIDE\OXYCODONE HYDROCHLORIDE
     Dates: start: 20190103
  14. MECKOOL [Concomitant]
     Indication: PROPHYLAXIS OF NAUSEA AND VOMITING
     Dates: start: 20190413, end: 20190413
  15. LACTOBACILLUS CASEI [Concomitant]
     Active Substance: LACTOBACILLUS CASEI
     Dates: start: 20180823
  16. TARGIN [Concomitant]
     Active Substance: NALOXONE HYDROCHLORIDE\OXYCODONE HYDROCHLORIDE
  17. SUSPEN ER [Concomitant]
     Indication: PYREXIA
     Dates: start: 20190411, end: 20190413
  18. GRASIN [Concomitant]
     Dates: start: 20190421, end: 20190421
  19. TARGIN [Concomitant]
     Active Substance: NALOXONE HYDROCHLORIDE\OXYCODONE HYDROCHLORIDE
     Indication: NEUROPATHY PERIPHERAL
     Route: 065
  20. IRCODON [Concomitant]
     Active Substance: OXYCODONE HYDROCHLORIDE
     Indication: NEUROPATHY PERIPHERAL
     Dates: start: 20181122
  21. CRAVIT [Concomitant]
     Active Substance: LEVOFLOXACIN
     Dates: start: 20190411, end: 20190412
  22. WINUF [Concomitant]
     Dates: start: 20190415, end: 20190415
  23. STILNOX [Concomitant]
     Active Substance: ZOLPIDEM TARTRATE
     Indication: INSOMNIA
     Dates: start: 20180823
  24. TARGIN [Concomitant]
     Active Substance: NALOXONE HYDROCHLORIDE\OXYCODONE HYDROCHLORIDE
     Route: 065
  25. IRCODON [Concomitant]
     Active Substance: OXYCODONE HYDROCHLORIDE
     Indication: LYMPHOEDEMA
  26. MECKOOL [Concomitant]
     Indication: PROPHYLAXIS OF NAUSEA AND VOMITING
     Dates: start: 20190413, end: 20190414

REACTIONS (1)
  - Acute kidney injury [Recovered/Resolved]

NARRATIVE: CASE EVENT DATE: 20190413
